FAERS Safety Report 6292791-2 (Version None)
Quarter: 2009Q3

REPORT INFORMATION
  Report Type: 
  Country: None (occurrence: None)
  Receive Date: 20090731
  Receipt Date: 20090720
  Transmission Date: 20100115
  Serious: Yes (Other)
  Sender: FDA-Public Use
  Company Number: DK-NOVOPROD-289960

PATIENT
  Weight: 4.31 kg

DRUGS (4)
  1. LEVEMIR [Suspect]
     Indication: DRUG EXPOSURE DURING PREGNANCY
     Dosage: 76 IU, QD AT WEEK 8
     Route: 064
  2. LEVEMIR [Suspect]
     Dosage: 106 IU, QD AT WEEK 38
     Route: 064
  3. NOVORAPID [Suspect]
     Indication: GESTATIONAL DIABETES
     Dosage: 28 IU, QD
     Route: 064
  4. NOVORAPID [Suspect]
     Dosage: 24 IU, QD AT WEEK 38
     Route: 064

REACTIONS (3)
  - CAESAREAN SECTION [None]
  - DRUG EXPOSURE DURING PREGNANCY [None]
  - FOETAL DISTRESS SYNDROME [None]
